FAERS Safety Report 7407288-3 (Version None)
Quarter: 2011Q2

REPORT INFORMATION
  Report Type: 
  Country: None (occurrence: None)
  Receive Date: 20110411
  Receipt Date: 20110331
  Transmission Date: 20111010
  Serious: Yes (Other)
  Sender: FDA-Public Use
  Company Number: PHHO2007ES04543

PATIENT
  Sex: Male
  Weight: 77 kg

DRUGS (1)
  1. FTY 720 [Suspect]
     Indication: MULTIPLE SCLEROSIS
     Dosage: 1.25 MG, QD
     Route: 048
     Dates: start: 20040706, end: 20070312

REACTIONS (7)
  - SUPERFICIAL SPREADING MELANOMA STAGE UNSPECIFIED [None]
  - SKIN LESION [None]
  - TINNITUS [None]
  - DISEASE PROGRESSION [None]
  - UPPER RESPIRATORY TRACT INFECTION [None]
  - MYELITIS [None]
  - SKIN PAPILLOMA [None]
